FAERS Safety Report 8078272-4 (Version None)
Quarter: 2012Q1

REPORT INFORMATION
  Report Type: 
  Country: None (occurrence: None)
  Receive Date: 20120123
  Receipt Date: 20120112
  Transmission Date: 20120608
  Serious: Yes (Life-Threatening, Hospitalization)
  Sender: FDA-Public Use
  Company Number: DSA_48881_2012

PATIENT
  Age: 66 Year
  Sex: Female

DRUGS (8)
  1. SALURES [Concomitant]
  2. GLYTRIN [Concomitant]
  3. METOPROLOL TARTRATE [Concomitant]
  4. ASPIRIN [Concomitant]
  5. ENALAPRIL MALEATE [Suspect]
     Indication: ESSENTIAL HYPERTENSION
     Dosage: 40 MG QD, ORAL
     Route: 048
  6. OMEPRAZOLE [Concomitant]
  7. LIPITOR [Concomitant]
  8. ZOLPIDEM TARTRATE [Concomitant]

REACTIONS (3)
  - OEDEMA MOUTH [None]
  - PHARYNGEAL OEDEMA [None]
  - ANGIOEDEMA [None]
